FAERS Safety Report 6538709-6 (Version None)
Quarter: 2010Q1

REPORT INFORMATION
  Report Type: 
  Country: None (occurrence: None)
  Receive Date: 20100113
  Receipt Date: 20100113
  Transmission Date: 20100710
  Serious: Yes (Other)
  Sender: FDA-Public Use
  Company Number: None

PATIENT
  Age: 79 Year
  Sex: Female
  Weight: 49.8957 kg

DRUGS (1)
  1. RECLAST [Suspect]
     Indication: OSTEOPOROSIS
     Dosage: 1 UNIT ONCE A YEAR

REACTIONS (18)
  - ASTHENIA [None]
  - BALANCE DISORDER [None]
  - DIZZINESS [None]
  - DYSGRAPHIA [None]
  - ECONOMIC PROBLEM [None]
  - FATIGUE [None]
  - FRUSTRATION [None]
  - GENERAL PHYSICAL HEALTH DETERIORATION [None]
  - HERPES ZOSTER [None]
  - INJURY [None]
  - MUSCLE DISORDER [None]
  - MUSCULAR WEAKNESS [None]
  - NERVOUS SYSTEM DISORDER [None]
  - SYNCOPE [None]
  - TREMOR [None]
  - TRIGGER FINGER [None]
  - UNEVALUABLE EVENT [None]
  - WEIGHT GAIN POOR [None]
